FAERS Safety Report 22203135 (Version 3)
Quarter: 2023Q2

REPORT INFORMATION
  Report Type: Spontaneous
  Country: US (occurrence: US)
  Receive Date: 20230412
  Receipt Date: 20230523
  Transmission Date: 20230722
  Serious: No
  Sender: FDA-Public Use
  Company Number: US-PFIZER INC-202300148640

PATIENT
  Age: 81 Year
  Sex: Female
  Weight: 90.72 kg

DRUGS (4)
  1. PAXLOVID [Suspect]
     Active Substance: NIRMATRELVIR\RITONAVIR
     Indication: COVID-19 treatment
     Dosage: UNK, 2X/DAY
     Route: 048
     Dates: start: 20230324, end: 20230328
  2. BENZONATATE [Concomitant]
     Active Substance: BENZONATATE
     Indication: Cough
     Dosage: 200 MG, 3X/DAY
     Dates: start: 20230324
  3. LOSARTAN [Concomitant]
     Active Substance: LOSARTAN
     Indication: Hypertension
     Dosage: 50 MG, 2X/DAY (LIFETIME)
     Dates: start: 2010
  4. GABAPENTIN [Concomitant]
     Active Substance: GABAPENTIN
     Indication: Lumbar radiculopathy
     Dosage: 600 MG, 1X/DAY (QHS)
     Dates: start: 2023

REACTIONS (2)
  - COVID-19 [Recovered/Resolved]
  - Disease recurrence [Recovered/Resolved]

NARRATIVE: CASE EVENT DATE: 20230404
